FAERS Safety Report 10223099 (Version 1)
Quarter: 2014Q2

REPORT INFORMATION
  Report Type: Spontaneous
  Country: FR (occurrence: FR)
  Receive Date: 20140607
  Receipt Date: 20140607
  Transmission Date: 20141212
  Serious: Yes (Hospitalization)
  Sender: FDA-Public Use
  Company Number: PHHY2014FR067950

PATIENT
  Sex: 0

DRUGS (2)
  1. TASIGNA [Suspect]
     Indication: GASTROINTESTINAL STROMAL TUMOUR
     Dosage: 150 MG, BID
  2. TASIGNA [Suspect]
     Indication: OFF LABEL USE

REACTIONS (2)
  - Coronary artery stenosis [Unknown]
  - Chest pain [Unknown]
